FAERS Safety Report 11188783 (Version 2)
Quarter: 2015Q3

REPORT INFORMATION
  Report Type: Spontaneous
  Country: US (occurrence: US)
  Receive Date: 20150615
  Receipt Date: 20150720
  Transmission Date: 20151125
  Serious: No
  Sender: FDA-Public Use
  Company Number: US-ASTRAZENECA-2015SE54352

PATIENT
  Age: 25896 Day
  Sex: Male
  Weight: 93.9 kg

DRUGS (21)
  1. SYMBICORT [Suspect]
     Active Substance: BUDESONIDE\FORMOTEROL FUMARATE DIHYDRATE
     Indication: CHRONIC OBSTRUCTIVE PULMONARY DISEASE
     Dosage: 160/4.5 TWO PUFFS BID
     Route: 055
     Dates: start: 2013, end: 20150531
  2. SYMBICORT [Suspect]
     Active Substance: BUDESONIDE\FORMOTEROL FUMARATE DIHYDRATE
     Indication: ASTHMA
     Dosage: 160/4.5 TWO PUFFS BID
     Route: 055
     Dates: start: 2013, end: 20150531
  3. BENADRYL [Concomitant]
     Active Substance: DIPHENHYDRAMINE HYDROCHLORIDE
  4. ROPINEROLE [Concomitant]
     Active Substance: ROPINIROLE
     Dates: start: 2010
  5. MAGNESIUM [Concomitant]
     Active Substance: MAGNESIUM
     Dates: start: 2010
  6. PROTONICS [Concomitant]
     Dates: start: 2010
  7. DIGOXIN. [Concomitant]
     Active Substance: DIGOXIN
     Indication: CARDIAC FAILURE CONGESTIVE
     Route: 048
     Dates: start: 2010
  8. SINGULAIR [Concomitant]
     Active Substance: MONTELUKAST SODIUM
     Route: 055
     Dates: start: 2010
  9. PROAIR HFA [Concomitant]
     Active Substance: ALBUTEROL SULFATE
     Indication: PROPHYLAXIS
     Route: 055
  10. VITAMIN D [Concomitant]
     Active Substance: CHOLECALCIFEROL
  11. SYMBICORT [Suspect]
     Active Substance: BUDESONIDE\FORMOTEROL FUMARATE DIHYDRATE
     Indication: EMPHYSEMA
     Dosage: 160/4.5 TWO PUFFS BID
     Route: 055
     Dates: start: 2013, end: 20150531
  12. SYMBICORT [Suspect]
     Active Substance: BUDESONIDE\FORMOTEROL FUMARATE DIHYDRATE
     Indication: CHRONIC OBSTRUCTIVE PULMONARY DISEASE
     Dosage: 160/4.5 TWO PUFFS BID
     Route: 055
     Dates: start: 20150520
  13. SYMBICORT [Suspect]
     Active Substance: BUDESONIDE\FORMOTEROL FUMARATE DIHYDRATE
     Indication: ASTHMA
     Dosage: 160/4.5 TWO PUFFS BID
     Route: 055
     Dates: start: 20150520
  14. XARELTO [Concomitant]
     Active Substance: RIVAROXABAN
     Dates: start: 2010
  15. TORSEMIDE. [Concomitant]
     Active Substance: TORSEMIDE
     Indication: DIURETIC THERAPY
     Route: 048
     Dates: start: 2010
  16. ZYRTEC [Concomitant]
     Active Substance: CETIRIZINE HYDROCHLORIDE
     Dates: start: 2010
  17. FLOMAX [Concomitant]
     Active Substance: TAMSULOSIN HYDROCHLORIDE
     Dates: start: 2010
  18. MVI [Concomitant]
     Active Substance: VITAMINS
  19. POTASSIUM [Concomitant]
     Active Substance: POTASSIUM
     Route: 048
     Dates: start: 2010
  20. MUSINEX [Concomitant]
  21. SYMBICORT [Suspect]
     Active Substance: BUDESONIDE\FORMOTEROL FUMARATE DIHYDRATE
     Indication: EMPHYSEMA
     Dosage: 160/4.5 TWO PUFFS BID
     Route: 055
     Dates: start: 20150520

REACTIONS (3)
  - Product quality issue [Unknown]
  - Drug dose omission [Not Recovered/Not Resolved]
  - Dyspnoea [Not Recovered/Not Resolved]

NARRATIVE: CASE EVENT DATE: 20150531
